FAERS Safety Report 9565259 (Version 1)
Quarter: 2013Q3

REPORT INFORMATION
  Report Type: Spontaneous
  Country: US (occurrence: US)
  Receive Date: 20130930
  Receipt Date: 20130930
  Transmission Date: 20140515
  Serious: Yes (Other)
  Sender: FDA-Public Use
  Company Number: US-PFIZER INC-2013278809

PATIENT
  Age: 71 Year
  Sex: Female
  Weight: 79.37 kg

DRUGS (4)
  1. LYRICA [Suspect]
     Indication: DIABETIC NEUROPATHY
     Dosage: UNK
  2. CYMBALTA [Suspect]
     Indication: DIABETIC NEUROPATHY
     Dosage: UNK
  3. METFORMIN [Concomitant]
     Indication: DIABETES MELLITUS
     Dosage: UNK
  4. INSULIN [Concomitant]
     Dosage: 40 UNITS

REACTIONS (3)
  - Retinopathy [Unknown]
  - Hallucination [Unknown]
  - Vision blurred [Unknown]
